FAERS Safety Report 9392234 (Version 1)
Quarter: 2013Q3

REPORT INFORMATION
  Report Type: Spontaneous
  Country: CN (occurrence: CN)
  Receive Date: 20130710
  Receipt Date: 20130710
  Transmission Date: 20140515
  Serious: Yes (Other)
  Sender: FDA-Public Use
  Company Number: CN-ROCHE-1244993

PATIENT
  Age: 73 Year
  Sex: Female
  Weight: 45 kg

DRUGS (6)
  1. XELODA [Suspect]
     Indication: COLON CANCER
     Route: 048
     Dates: start: 20110423, end: 20120506
  2. AVASTIN [Suspect]
     Indication: COLON CANCER
     Route: 041
     Dates: start: 201307
  3. IRINOTECAN [Suspect]
     Indication: COLON CANCER
     Route: 041
     Dates: end: 20121123
  4. PEMETREXED [Suspect]
     Indication: COLON CANCER
     Route: 041
     Dates: start: 20121123
  5. PEMETREXED [Suspect]
     Route: 041
     Dates: start: 201307
  6. OXALIPLATIN [Concomitant]
     Route: 041
     Dates: start: 20110423, end: 20120506

REACTIONS (2)
  - Metastases to bone [Not Recovered/Not Resolved]
  - Phlebitis [Not Recovered/Not Resolved]
